FAERS Safety Report 25634823 (Version 2)
Quarter: 2025Q3

REPORT INFORMATION
  Report Type: Report from Study
  Country: US (occurrence: US)
  Receive Date: 20250801
  Receipt Date: 20250822
  Transmission Date: 20251021
  Serious: Yes (Hospitalization)
  Sender: MERCK SHARP & DOHME LLC
  Company Number: US-009507513-2286824

PATIENT
  Sex: Male
  Weight: 77.111 kg

DRUGS (39)
  1. WELIREG [Suspect]
     Active Substance: BELZUTIFAN
     Indication: Renal cancer
     Route: 048
     Dates: start: 20250423, end: 20250423
  2. WELIREG [Suspect]
     Active Substance: BELZUTIFAN
     Indication: Renal cancer
     Dosage: 120MG DAILY?STRENGTH: 40 MG
     Route: 048
     Dates: start: 20250430, end: 20250430
  3. ACETAMINOPHEN [Concomitant]
     Active Substance: ACETAMINOPHEN
  4. ALBUTEROL SULFATE [Concomitant]
     Active Substance: ALBUTEROL SULFATE
  5. VITAMIN C [Concomitant]
     Active Substance: ASCORBIC ACID
  6. ASPIRIN [Concomitant]
     Active Substance: ASPIRIN
  7. ATORVASTATIN [Concomitant]
     Active Substance: ATORVASTATIN
  8. BENZONATATE [Concomitant]
     Active Substance: BENZONATATE
  9. BETAMETHASONE [Concomitant]
     Active Substance: BETAMETHASONE
  10. VITAMIN D2 [Concomitant]
     Active Substance: ERGOCALCIFEROL
  11. COENZYME Q10 [Concomitant]
     Active Substance: DIETARY SUPPLEMENT\UBIDECARENONE
  12. VITAMIN B12 [Concomitant]
     Active Substance: CYANOCOBALAMIN
  13. DEXAMETHASONE [Concomitant]
     Active Substance: DEXAMETHASONE
  14. SIMETHICONE (DIMETHICONE) [Concomitant]
     Active Substance: DIMETHICONE
  15. DRONABINOL [Concomitant]
     Active Substance: DRONABINOL
  16. FERROUS SULFATE [Concomitant]
     Active Substance: FERROUS SULFATE
  17. FLUTICASONE [Concomitant]
     Active Substance: FLUTICASONE
  18. HYDROCORTISONE [Concomitant]
     Active Substance: HYDROCORTISONE
  19. HYDROXYCHLOROQUINE [Concomitant]
     Active Substance: HYDROXYCHLOROQUINE
  20. LATANOPROST [Concomitant]
     Active Substance: LATANOPROST
  21. LEVOTHYROXINE [Concomitant]
     Active Substance: LEVOTHYROXINE
  22. LIDOCAINE [Concomitant]
     Active Substance: LIDOCAINE
  23. LORAZEPAM [Concomitant]
     Active Substance: LORAZEPAM
  24. MAGNESIUM GLUCONATE [Concomitant]
     Active Substance: MAGNESIUM GLUCONATE
  25. MEMANTINE [Concomitant]
     Active Substance: MEMANTINE
  26. Daily Multiple [Concomitant]
  27. NALOXONE [Concomitant]
     Active Substance: NALOXONE
  28. FISH OIL\OMEGA-3 FATTY ACIDS [Concomitant]
     Active Substance: FISH OIL\OMEGA-3 FATTY ACIDS
  29. ONDANSETRON [Concomitant]
     Active Substance: ONDANSETRON
  30. OXYCODONE [Concomitant]
     Active Substance: OXYCODONE
  31. PANTOPRAZOLE [Concomitant]
     Active Substance: PANTOPRAZOLE
  32. POTASSIUM CHLORIDE [Concomitant]
     Active Substance: POTASSIUM CHLORIDE
  33. CODEINE PHOSPHATE\PROMETHAZINE [Concomitant]
     Active Substance: CODEINE PHOSPHATE\PROMETHAZINE
  34. Sennosides-Docusate [Concomitant]
  35. JANUMET [Concomitant]
     Active Substance: METFORMIN HYDROCHLORIDE\SITAGLIPTIN PHOSPHATE
  36. TAMSULOSIN [Concomitant]
     Active Substance: TAMSULOSIN
  37. METFORMIN [Concomitant]
     Active Substance: METFORMIN HYDROCHLORIDE
  38. ASPIRIN [Concomitant]
     Active Substance: ASPIRIN
  39. FINASTERIDE [Concomitant]
     Active Substance: FINASTERIDE

REACTIONS (19)
  - Gastrointestinal disorder [Unknown]
  - Upper limb fracture [Recovering/Resolving]
  - Lymphoedema [Unknown]
  - Hypomagnesaemia [Recovering/Resolving]
  - Diarrhoea [Unknown]
  - Fatigue [Not Recovered/Not Resolved]
  - Malnutrition [Unknown]
  - Dehydration [Recovering/Resolving]
  - Aspartate aminotransferase decreased [Unknown]
  - Alopecia [Not Recovered/Not Resolved]
  - Type V hyperlipidaemia [Unknown]
  - Pneumonia [Recovered/Resolved]
  - Thrombocytopenia [Unknown]
  - Walking disability [Unknown]
  - Essential hypertension [Unknown]
  - Therapy partial responder [Unknown]
  - Eastern Cooperative Oncology Group performance status worsened [Unknown]
  - Acute kidney injury [Recovered/Resolved]
  - Alanine aminotransferase decreased [Unknown]

NARRATIVE: CASE EVENT DATE: 20250101
